FAERS Safety Report 17879325 (Version 1)
Quarter: 2020Q2

REPORT INFORMATION
  Report Type: Report from Study
  Country: CA (occurrence: CA)
  Receive Date: 20200610
  Receipt Date: 20200610
  Transmission Date: 20200714
  Serious: Yes (Other)
  Sender: FDA-Public Use
  Company Number: NVSC2020CA160190

PATIENT
  Age: 73 Year
  Sex: Female

DRUGS (1)
  1. BEOVU [Suspect]
     Active Substance: BROLUCIZUMAB-DBLL
     Indication: AGE-RELATED MACULAR DEGENERATION
     Dosage: UNK (6MG/0.05 ML) IN BOTH EYES
     Route: 065
     Dates: start: 20200604

REACTIONS (2)
  - Eye haemorrhage [Unknown]
  - Vein disorder [Unknown]

NARRATIVE: CASE EVENT DATE: 20200604
